FAERS Safety Report 8784268 (Version 1)
Quarter: 2012Q4

REPORT INFORMATION
  Report Type: 
  Country: US (occurrence: US)
  Receive Date: 20120913
  Receipt Date: 20120913
  Transmission Date: 20130627
  Serious: Yes (Life-Threatening, Other)
  Sender: FDA-Public Use
  Company Number: US-009507513-1209USA001081

PATIENT

DRUGS (30)
  1. SINGULAIR [Suspect]
     Dosage: 10 mg, qd
     Route: 048
     Dates: start: 201008
  2. HYDROCHLOROTHIAZIDE (+) LISINOPRIL [Concomitant]
  3. VALTREX [Concomitant]
  4. NEXIUM [Concomitant]
  5. PAMINE [Concomitant]
  6. DETROL LA [Concomitant]
  7. DOXYCYCLINE [Concomitant]
  8. TRIAMCINOLONE ACETONIDE [Concomitant]
  9. TRIAMCINOLONE [Concomitant]
  10. MUPIROCIN [Concomitant]
  11. HIBICLENS [Concomitant]
  12. NUVIGIL [Concomitant]
  13. PROAIR (ALBUTEROL SULFATE) [Concomitant]
  14. COMBIVENT [Concomitant]
  15. EFFEXOR XR [Concomitant]
  16. TOPAMAX [Concomitant]
  17. IMITREX (SUMATRIPTAN) [Concomitant]
  18. AMITRIPTYLINE HYDROCHLORIDE [Concomitant]
  19. SOMA [Concomitant]
  20. LIDODERM [Concomitant]
  21. TRAMADOL HYDROCHLORIDE [Concomitant]
  22. CLONIDINE HYDROCHLORIDE [Concomitant]
  23. DILAUDID [Concomitant]
  24. OXYIR [Concomitant]
  25. DIAZEPAM [Concomitant]
  26. CRESTOR [Concomitant]
  27. CLARITIN [Concomitant]
  28. XYZAL [Concomitant]
  29. NUMOISYN LIQUID [Concomitant]
  30. CHANTIX [Concomitant]

REACTIONS (3)
  - Pain [Not Recovered/Not Resolved]
  - Loss of consciousness [Unknown]
  - Malaise [Unknown]
